FAERS Safety Report 9017578 (Version 1)
Quarter: 2013Q1

REPORT INFORMATION
  Report Type: Spontaneous
  Country: GB (occurrence: GB)
  Receive Date: 20130117
  Receipt Date: 20130117
  Transmission Date: 20140127
  Serious: Yes (Hospitalization)
  Sender: FDA-Public Use
  Company Number: GB-TEVA-380309ISR

PATIENT
  Age: 74 Year
  Sex: Female
  Weight: 76 kg

DRUGS (7)
  1. RISEDRONIC ACID [Suspect]
     Indication: OSTEOPOROSIS
     Route: 048
     Dates: start: 2006, end: 20121004
  2. TRAMADOL [Concomitant]
  3. OMEPRAZOLE [Concomitant]
  4. ATENOLOL [Concomitant]
  5. AMITRIPTYLINE [Concomitant]
  6. DICLOFENAC [Concomitant]
  7. COLECALCIFEROL [Concomitant]

REACTIONS (1)
  - Pubis fracture [Not Recovered/Not Resolved]
